FAERS Safety Report 12312272 (Version 3)
Quarter: 2016Q3

REPORT INFORMATION
  Report Type: Spontaneous
  Country: DK (occurrence: DK)
  Receive Date: 20160428
  Receipt Date: 20160928
  Transmission Date: 20161109
  Serious: Yes (Hospitalization, Other)
  Sender: FDA-Public Use
  Company Number: DK-ALLERGAN-1648481

PATIENT
  Age: 45 Year
  Sex: Female

DRUGS (4)
  1. ESMYA [Suspect]
     Active Substance: ULIPRISTAL ACETATE
     Indication: METRORRHAGIA
  2. ESMYA [Suspect]
     Active Substance: ULIPRISTAL ACETATE
     Indication: MENORRHAGIA
  3. ESMYA [Suspect]
     Active Substance: ULIPRISTAL ACETATE
     Indication: INCONTINENCE
  4. ESMYA [Suspect]
     Active Substance: ULIPRISTAL ACETATE
     Indication: INTERCEPTED DRUG ADMINISTRATION ERROR
     Dosage: 5 MG, UNKNOWN
     Route: 048
     Dates: start: 20150615, end: 20151210

REACTIONS (7)
  - Post procedural haemorrhage [Unknown]
  - Menometrorrhagia [Recovered/Resolved]
  - Intentional product use issue [Unknown]
  - Leiomyosarcoma metastatic [Unknown]
  - Dysmenorrhoea [Recovered/Resolved]
  - Intercepted drug administration error [Unknown]
  - Pain [Unknown]

NARRATIVE: CASE EVENT DATE: 20150915
